FAERS Safety Report 10396561 (Version 1)
Quarter: 2014Q3

REPORT INFORMATION
  Report Type: Spontaneous
  Country: US (occurrence: None)
  Receive Date: 20140818
  Receipt Date: 20140818
  Transmission Date: 20150326
  Serious: Yes (Other)
  Sender: FDA-Public Use
  Company Number: None

PATIENT
  Age: 65 Year
  Sex: Male

DRUGS (1)
  1. REBIF [Suspect]
     Active Substance: INTERFERON BETA-1A
     Indication: PANCREATIC CARCINOMA
     Route: 058
     Dates: start: 20130611, end: 20140405

REACTIONS (3)
  - Mood swings [None]
  - Insomnia [None]
  - Personality change [None]

NARRATIVE: CASE EVENT DATE: 20140401
